FAERS Safety Report 13081039 (Version 1)
Quarter: 2017Q1

REPORT INFORMATION
  Report Type: Spontaneous
  Country: US (occurrence: US)
  Receive Date: 20170103
  Receipt Date: 20170103
  Transmission Date: 20170428
  Serious: No
  Sender: FDA-Public Use
  Company Number: US-PFIZER INC-2016598653

PATIENT
  Age: 55 Year
  Sex: Female
  Weight: 70.31 kg

DRUGS (5)
  1. LEVOXYL [Suspect]
     Active Substance: LEVOTHYROXINE SODIUM
     Indication: AUTOIMMUNE THYROIDITIS
     Dosage: 50 UG (HALF OF 100 UG)
     Route: 048
  2. LEVOXYL [Suspect]
     Active Substance: LEVOTHYROXINE SODIUM
     Indication: HYPOTHYROIDISM
     Dosage: 44 UG (HALF OF 88 UG)
     Route: 048
  3. QUESTRAN [Concomitant]
     Active Substance: CHOLESTYRAMINE
     Indication: COLITIS
     Dosage: UNK, 1X/DAY (AT NIGHT)
  4. SYNTHROID [Concomitant]
     Active Substance: LEVOTHYROXINE SODIUM
     Dosage: UNK
  5. VITAMIN D CALCIUM [Concomitant]
     Dosage: UNK, 1X/DAY

REACTIONS (4)
  - Malaise [Unknown]
  - Intentional product misuse [Unknown]
  - Blood thyroid stimulating hormone increased [Unknown]
  - Drug effect decreased [Unknown]

NARRATIVE: CASE EVENT DATE: 20161216
